FAERS Safety Report 11926243 (Version 1)
Quarter: 2016Q1

REPORT INFORMATION
  Report Type: Spontaneous
  Country: US (occurrence: US)
  Receive Date: 20160119
  Receipt Date: 20160119
  Transmission Date: 20160526
  Serious: No
  Sender: FDA-Public Use
  Company Number: US-009507513-1601USA004807

PATIENT
  Age: 26 Year
  Sex: Female
  Weight: 52.61 kg

DRUGS (2)
  1. NEXPLANON [Suspect]
     Active Substance: ETONOGESTREL
     Dosage: A IMPLANT
     Dates: end: 20160105
  2. NEXPLANON [Suspect]
     Active Substance: ETONOGESTREL
     Indication: CONTRACEPTION
     Dosage: UNK
     Route: 059
     Dates: start: 20160105

REACTIONS (5)
  - Pain in extremity [Not Recovered/Not Resolved]
  - Oedema peripheral [Recovered/Resolved]
  - Paraesthesia [Unknown]
  - Implant site reaction [Unknown]
  - Implant site mass [Unknown]

NARRATIVE: CASE EVENT DATE: 201601
